FAERS Safety Report 21508660 (Version 3)
Quarter: 2022Q4

REPORT INFORMATION
  Report Type: Spontaneous
  Country: IT (occurrence: IT)
  Receive Date: 20221026
  Receipt Date: 20221128
  Transmission Date: 20230113
  Serious: Yes (Hospitalization)
  Sender: FDA-Public Use
  Company Number: IT-BoehringerIngelheim-2022-BI-198379

PATIENT
  Age: 55 Year
  Sex: Female
  Weight: 42 kg

DRUGS (6)
  1. NINTEDANIB [Suspect]
     Active Substance: NINTEDANIB
     Indication: Systemic sclerosis pulmonary
     Dosage: FORMULATION: PASTILLE
     Dates: start: 2019
  2. ILOPROST [Concomitant]
     Active Substance: ILOPROST
     Indication: Product used for unknown indication
  3. BOSENTAN [Concomitant]
     Active Substance: BOSENTAN
     Indication: Skin ulcer
     Dates: start: 2017
  4. SILDENAFIL [Concomitant]
     Active Substance: SILDENAFIL
     Indication: Product used for unknown indication
     Dates: start: 2017
  5. MYCOPHENOLIC ACID [Concomitant]
     Active Substance: MYCOPHENOLIC ACID
     Indication: Product used for unknown indication
     Dates: start: 2019
  6. PREDNISONE [Concomitant]
     Active Substance: PREDNISONE
     Indication: Product used for unknown indication

REACTIONS (7)
  - Post-acute COVID-19 syndrome [Recovered/Resolved]
  - Pneumonia [Recovered/Resolved]
  - Brain natriuretic peptide abnormal [Unknown]
  - Sarcopenia [Not Recovered/Not Resolved]
  - Weight decreased [Not Recovered/Not Resolved]
  - Anal incontinence [Recovered/Resolved]
  - Diarrhoea [Recovering/Resolving]

NARRATIVE: CASE EVENT DATE: 20190101
